FAERS Safety Report 13450841 (Version 2)
Quarter: 2017Q2

REPORT INFORMATION
  Report Type: Spontaneous
  Country: US (occurrence: US)
  Receive Date: 20170418
  Receipt Date: 20170504
  Transmission Date: 20170830
  Serious: Yes (Death, Hospitalization, Other)
  Sender: FDA-Public Use
  Company Number: US-IBIGEN-2017.02617

PATIENT
  Age: 60 Year
  Sex: Male

DRUGS (7)
  1. CIPROFLOXACIN. [Suspect]
     Active Substance: CIPROFLOXACIN
  2. CEFEPIME [Suspect]
     Active Substance: CEFEPIME HYDROCHLORIDE
  3. AMPICILLIN [Concomitant]
     Active Substance: AMPICILLIN
  4. ACICLOVIR [Concomitant]
     Active Substance: ACYCLOVIR
  5. DOXYCYCLINE. [Suspect]
     Active Substance: DOXYCYCLINE
  6. VANCOMYCIN [Suspect]
     Active Substance: VANCOMYCIN
  7. ZOSYN [Suspect]
     Active Substance: PIPERACILLIN SODIUM\TAZOBACTAM SODIUM
     Route: 042

REACTIONS (2)
  - Multiple organ dysfunction syndrome [Fatal]
  - Septic shock [Fatal]
